FAERS Safety Report 6894335-0 (Version None)
Quarter: 2010Q3

REPORT INFORMATION
  Report Type: 
  Country: None (occurrence: None)
  Receive Date: 20100726
  Receipt Date: 20100716
  Transmission Date: 20110219
  Serious: Yes (Life-Threatening, Hospitalization)
  Sender: FDA-Public Use
  Company Number: 102030- 1

PATIENT
  Age: 52 Year
  Sex: Female

DRUGS (1)
  1. CISPLATIN [Suspect]
     Indication: HEAD AND NECK CANCER
     Dosage: 129MG
     Dates: start: 20100216

REACTIONS (5)
  - EMBOLISM ARTERIAL [None]
  - RESPIRATORY ARREST [None]
  - RESPIRATORY DISTRESS [None]
  - THROMBOSIS [None]
  - UNRESPONSIVE TO STIMULI [None]
